FAERS Safety Report 8698876 (Version 2)
Quarter: 2012Q4

REPORT INFORMATION
  Report Type: 
  Country: JP (occurrence: JP)
  Receive Date: 20120802
  Receipt Date: 20121009
  Transmission Date: 20130627
  Serious: Yes (Other)
  Sender: FDA-Public Use
  Company Number: JP-PFIZER INC-2012185816

PATIENT
  Age: 64 Year
  Sex: Female

DRUGS (2)
  1. LIPITOR [Suspect]
     Indication: DYSLIPIDAEMIA
     Dosage: 10 mg, daily
     Route: 048
  2. ZETIA [Concomitant]
     Indication: DYSLIPIDAEMIA
     Dosage: UNK

REACTIONS (1)
  - White blood cell count decreased [Recovered/Resolved]
